FAERS Safety Report 8619996-7 (Version None)
Quarter: 2012Q3

REPORT INFORMATION
  Report Type: 
  Country: None (occurrence: None)
  Receive Date: 20120817
  Receipt Date: 20120817
  Transmission Date: 20120928
  Serious: Yes (Hospitalization)
  Sender: FDA-Public Use
  Company Number: None

PATIENT
  Sex: Male

DRUGS (2)
  1. RIBAVIRIN [Suspect]
     Dosage: (THREE TABLETS PO BID)
     Route: 048
     Dates: start: 20120814
  2. PEGASYS [Suspect]
     Dates: start: 20120411

REACTIONS (1)
  - ANAEMIA [None]
